FAERS Safety Report 21407758 (Version 2)
Quarter: 2022Q4

REPORT INFORMATION
  Report Type: Report from Study
  Country: US (occurrence: US)
  Receive Date: 20221004
  Receipt Date: 20221116
  Transmission Date: 20230113
  Serious: No
  Sender: FDA-Public Use
  Company Number: US-ABBVIE-22K-163-4475290-00

PATIENT
  Sex: Female

DRUGS (2)
  1. HUMIRA [Suspect]
     Active Substance: ADALIMUMAB
     Indication: Hidradenitis
     Dosage: CITRATE FREE
     Route: 058
  2. HUMIRA [Suspect]
     Active Substance: ADALIMUMAB
     Dosage: CITRATE FREE
     Route: 058

REACTIONS (15)
  - Erythema [Unknown]
  - Therapeutic product effect incomplete [Unknown]
  - Dry skin [Not Recovered/Not Resolved]
  - Off label use [Unknown]
  - Axillary mass [Not Recovered/Not Resolved]
  - Blister [Unknown]
  - Pain [Unknown]
  - Subcutaneous abscess [Not Recovered/Not Resolved]
  - Skin disorder [Unknown]
  - Groin abscess [Not Recovered/Not Resolved]
  - Skin burning sensation [Not Recovered/Not Resolved]
  - Wound haemorrhage [Unknown]
  - Abscess rupture [Unknown]
  - Erythema [Not Recovered/Not Resolved]
  - Skin exfoliation [Unknown]
